FAERS Safety Report 9587716 (Version 2)
Quarter: 2013Q4

REPORT INFORMATION
  Report Type: Spontaneous
  Country: LU (occurrence: LU)
  Receive Date: 20131003
  Receipt Date: 20131016
  Transmission Date: 20140711
  Serious: Yes (Death, Hospitalization)
  Sender: FDA-Public Use
  Company Number: LU-B.I. PHARMACEUTICALS,INC./RIDGEFIELD-2013-BI-31005BL

PATIENT
  Age: 87 Year
  Sex: Female
  Weight: 55 kg

DRUGS (4)
  1. PRADAXA [Suspect]
     Indication: ATRIAL FIBRILLATION
     Dosage: 150 MG
     Route: 048
     Dates: start: 201302, end: 20130709
  2. FERRO SANOL [Concomitant]
  3. NEXIAM [Concomitant]
  4. CONCOR [Concomitant]

REACTIONS (1)
  - Cerebrovascular accident [Fatal]
